FAERS Safety Report 9129435 (Version 1)
Quarter: 2013Q1

REPORT INFORMATION
  Report Type: Spontaneous
  Country: US (occurrence: US)
  Receive Date: 20130228
  Receipt Date: 20130228
  Transmission Date: 20140127
  Serious: Yes (Hospitalization)
  Sender: FDA-Public Use
  Company Number: US-UCBSA-079091

PATIENT
  Age: 31 Year
  Sex: Female

DRUGS (16)
  1. CIMZIA [Suspect]
     Indication: CROHN^S DISEASE
     Route: 058
     Dates: start: 2012
  2. CIMZIA [Suspect]
     Indication: CROHN^S DISEASE
     Dates: start: 2009, end: 2012
  3. TYSABRI [Suspect]
     Indication: CROHN^S DISEASE
     Dosage: 300 MG
     Route: 042
     Dates: start: 20130107
  4. FOLIC ACID [Concomitant]
     Dosage: 1 MG
     Route: 048
  5. METHOTREXATE [Concomitant]
     Indication: HEPATIC ENZYME INCREASED
     Route: 058
     Dates: start: 201201
  6. PREDNISONE [Concomitant]
  7. VITAMIN B12 [Concomitant]
     Dosage: 1000 MCG/ML, INJECTION SOLUTION
  8. METHYLPREDNISOLONE [Concomitant]
     Dosage: UNKNOWN DOSE
  9. CORTENEMA RECTAL ENEMA [Concomitant]
     Dosage: 100 MG/60 ML
     Route: 054
  10. DIPHENOXYLATE-ATROPINE [Concomitant]
     Dosage: 2.5-0.025 MG
     Route: 048
  11. VITAMIN D2 [Concomitant]
     Dosage: 50000 UNIT
     Route: 048
  12. LIBRAX [Concomitant]
     Dosage: 5-2.5 MG
     Route: 048
  13. NORCO [Concomitant]
     Dosage: 7.5-325 MG
     Route: 048
  14. OPIUM TINCTURE [Concomitant]
     Dosage: 10 MG/ML
     Route: 048
  15. TRAMADOL [Concomitant]
     Dosage: 50 MG
     Route: 048
  16. ENTOCORT [Concomitant]
     Dosage: UNKNOWN DOSE
     Dates: start: 2012

REACTIONS (3)
  - Crohn^s disease [Recovering/Resolving]
  - Oedema peripheral [Unknown]
  - Rash maculo-papular [Unknown]
